FAERS Safety Report 7047669-3 (Version None)
Quarter: 2010Q4

REPORT INFORMATION
  Report Type: 
  Country: None (occurrence: None)
  Receive Date: 20101015
  Receipt Date: 20101005
  Transmission Date: 20110411
  Serious: Yes (Hospitalization, Disabling, Other)
  Sender: FDA-Public Use
  Company Number: US-MERCK-1004USA00192

PATIENT
  Sex: Female

DRUGS (3)
  1. FOSAMAX [Suspect]
     Route: 048
     Dates: start: 20010617
  2. FOSAMAX [Suspect]
     Route: 048
     Dates: start: 20040401
  3. FOSAMAX [Suspect]
     Route: 048
     Dates: start: 20000322

REACTIONS (17)
  - ADVERSE DRUG REACTION [None]
  - BONE DISORDER [None]
  - CANDIDIASIS [None]
  - DENTAL CARIES [None]
  - DENTAL FISTULA [None]
  - EYE DISORDER [None]
  - FEMUR FRACTURE [None]
  - FISTULA [None]
  - LOW TURNOVER OSTEOPATHY [None]
  - OSTEONECROSIS OF JAW [None]
  - PALPITATIONS [None]
  - RETINAL DETACHMENT [None]
  - SPINAL DISORDER [None]
  - STRESS FRACTURE [None]
  - SWELLING FACE [None]
  - TOOTH ABSCESS [None]
  - TOOTH FRACTURE [None]
